FAERS Safety Report 6632893-1 (Version None)
Quarter: 2010Q1

REPORT INFORMATION
  Report Type: 
  Country: None (occurrence: None)
  Receive Date: 20100312
  Receipt Date: 20100210
  Transmission Date: 20100710
  Serious: No
  Sender: FDA-Public Use
  Company Number: US-BIOGENIDEC-2010BI004871

PATIENT
  Sex: Female

DRUGS (1)
  1. AVONEX [Suspect]
     Indication: MULTIPLE SCLEROSIS
     Route: 030
     Dates: start: 20080101, end: 20080101

REACTIONS (5)
  - ABDOMINAL DISCOMFORT [None]
  - COLD SWEAT [None]
  - FEELING ABNORMAL [None]
  - FEELING COLD [None]
  - NAUSEA [None]
